FAERS Safety Report 15691517 (Version 1)
Quarter: 2018Q4

REPORT INFORMATION
  Report Type: Spontaneous
  Country: FR (occurrence: FR)
  Receive Date: 20181205
  Receipt Date: 20181205
  Transmission Date: 20190205
  Serious: Yes (Hospitalization)
  Sender: FDA-Public Use
  Company Number: FR-LEADIANT BIOSCIENCES INC-2018STPI000738

PATIENT
  Age: 72 Year
  Sex: Male
  Weight: 83 kg

DRUGS (5)
  1. TRUXIMA [Concomitant]
     Active Substance: RITUXIMAB-ABBS
     Indication: CENTRAL NERVOUS SYSTEM LYMPHOMA
     Dosage: 1480 MG, QD
     Route: 042
     Dates: start: 20180925, end: 20181008
  2. NATULAN [Suspect]
     Active Substance: PROCARBAZINE HYDROCHLORIDE
     Indication: CENTRAL NERVOUS SYSTEM LYMPHOMA
     Dosage: 420 MG, QD
     Route: 048
     Dates: start: 20180925, end: 20181008
  3. METHOTREXATE MYLAN [Concomitant]
     Active Substance: METHOTREXATE SODIUM
     Indication: CENTRAL NERVOUS SYSTEM LYMPHOMA
     Dosage: 7.92 G, QD
     Route: 042
     Dates: start: 20180925, end: 20181008
  4. VINCRISTINE TEVA [Concomitant]
     Active Substance: VINCRISTINE
     Indication: CENTRAL NERVOUS SYSTEM LYMPHOMA
     Dosage: 4 MG, QD
     Route: 042
     Dates: start: 20180925, end: 20181008
  5. MATULANE [Suspect]
     Active Substance: PROCARBAZINE HYDROCHLORIDE
     Indication: CENTRAL NERVOUS SYSTEM LYMPHOMA
     Dosage: 420 MG, QD
     Route: 048
     Dates: start: 20180925, end: 20181008

REACTIONS (1)
  - Acute kidney injury [Recovering/Resolving]

NARRATIVE: CASE EVENT DATE: 20181008
